FAERS Safety Report 7055897-6 (Version None)
Quarter: 2010Q4

REPORT INFORMATION
  Report Type: 
  Country: None (occurrence: None)
  Receive Date: 20101021
  Receipt Date: 20101014
  Transmission Date: 20110411
  Serious: Yes (Other)
  Sender: FDA-Public Use
  Company Number: CHPA2010US16224

PATIENT
  Age: 65 Year
  Sex: Male
  Weight: 98.866 kg

DRUGS (7)
  1. THERAFLU SEVERE COLD (NCH) [Suspect]
     Indication: INFLUENZA
     Dosage: 1 DF, QD
     Route: 048
     Dates: start: 20101014, end: 20101014
  2. THERAFLU SEVERE COLD (NCH) [Suspect]
     Indication: NASOPHARYNGITIS
  3. CELEBREX [Suspect]
     Dosage: 200 MG, QD
  4. ASPIRIN [Suspect]
     Dosage: 81 MG, QD
  5. LIPITOR [Concomitant]
     Dosage: 10 MG, QHS
  6. PRILOSEC [Concomitant]
     Dosage: UNK, UNK
  7. BENADRYL ^WARNER-LAMBERT^               /USA/ [Concomitant]
     Indication: SLEEP DISORDER
     Dosage: 50 MG, QHS

REACTIONS (2)
  - AMNESIA [None]
  - EXPIRED DRUG ADMINISTERED [None]
